FAERS Safety Report 4700565-6 (Version None)
Quarter: 2005Q2

REPORT INFORMATION
  Report Type: 
  Country: None (occurrence: None)
  Receive Date: 20050627
  Receipt Date: 20050627
  Transmission Date: 20051028
  Serious: Yes (Death)
  Sender: FDA-Public Use
  Company Number: None

PATIENT
  Age: 79 Year
  Sex: Female

DRUGS (13)
  1. PHENERGAN HYDROCHLORIDE TAB [Suspect]
     Indication: HEADACHE
     Dosage: 25 MG 1X INTRAVENOU
     Route: 042
     Dates: start: 20041120, end: 20041120
  2. PHENERGAN HYDROCHLORIDE TAB [Suspect]
     Indication: VOMITING
     Dosage: 25 MG 1X INTRAVENOU
     Route: 042
     Dates: start: 20041120, end: 20041120
  3. ANZEMET [Suspect]
     Indication: HEADACHE
     Dosage: 12.5 MG 1 X INTRAVENOU
     Route: 042
     Dates: start: 20041120, end: 20041120
  4. ANZEMET [Suspect]
     Indication: VOMITING
     Dosage: 12.5 MG 1 X INTRAVENOU
     Route: 042
     Dates: start: 20041120, end: 20041120
  5. LIPITOR [Concomitant]
  6. DIOVAN [Concomitant]
  7. DYAZIDE [Concomitant]
  8. ADVAIR DISKUS 100/50 [Concomitant]
  9. METOPROLOL [Concomitant]
  10. NEURONTIN [Concomitant]
  11. INSULIN [Concomitant]
  12. COUMADIN [Concomitant]
  13. PROTONIX [Concomitant]

REACTIONS (7)
  - BRADYCARDIA [None]
  - CARDIAC ARREST [None]
  - ELECTROCARDIOGRAM ABNORMAL [None]
  - ENCEPHALOPATHY [None]
  - HYPOTENSION [None]
  - ISCHAEMIA [None]
  - TACHYCARDIA [None]
